FAERS Safety Report 6409762-5 (Version None)
Quarter: 2009Q4

REPORT INFORMATION
  Report Type: 
  Country: None (occurrence: None)
  Receive Date: 20091022
  Receipt Date: 20091007
  Transmission Date: 20100525
  Serious: Yes (Other)
  Sender: FDA-Public Use
  Company Number: US-JNJFOC-20091003580

PATIENT
  Age: 2 Year
  Sex: Female
  Weight: 13.15 kg

DRUGS (4)
  1. CHILDREN'S TYLENOL PLUS COLD AND ALLERGY BUBBLEGUM [Suspect]
     Indication: PYREXIA
     Route: 048
  2. CHILDREN'S TYLENOL PLUS COUGH + RUNNY NOSE CHERRY [Suspect]
     Indication: PYREXIA
     Route: 048
  3. CHILDREN'S MOTRIN [Concomitant]
     Indication: PYREXIA
  4. ANTIBIOTIC [Concomitant]

REACTIONS (9)
  - COUGH [None]
  - EAR PAIN [None]
  - EXPIRED DRUG ADMINISTERED [None]
  - PNEUMONIA [None]
  - PRODUCT QUALITY ISSUE [None]
  - PYREXIA [None]
  - RHINORRHOEA [None]
  - TRANSMISSION OF AN INFECTIOUS AGENT VIA A MEDICINAL PRODUCT [None]
  - WRONG DRUG ADMINISTERED [None]
